FAERS Safety Report 6610327-0 (Version None)
Quarter: 2010Q1

REPORT INFORMATION
  Report Type: 
  Country: None (occurrence: None)
  Receive Date: 20100302
  Receipt Date: 20100223
  Transmission Date: 20100710
  Serious: Yes (Hospitalization)
  Sender: FDA-Public Use
  Company Number: PHHO2010AU02964

PATIENT
  Sex: Female
  Weight: 69 kg

DRUGS (3)
  1. CERTICAN [Suspect]
     Indication: RENAL TRANSPLANT
     Dosage: 3 MG MANE, 2.75 MG NOCTE
     Route: 048
     Dates: start: 20090512
  2. PREDNISONE [Concomitant]
     Indication: PROPHYLAXIS
     Dosage: 10 MG, DAILY
     Route: 048
     Dates: start: 20090423
  3. SLOW-K [Concomitant]

REACTIONS (2)
  - HYPOKALAEMIA [None]
  - PYREXIA [None]
